FAERS Safety Report 6340241-X (Version None)
Quarter: 2009Q3

REPORT INFORMATION
  Report Type: 
  Country: None (occurrence: None)
  Receive Date: 20090902
  Receipt Date: 20090724
  Transmission Date: 20100115
  Serious: Yes (Hospitalization)
  Sender: FDA-Public Use
  Company Number: 54973 AE#165

PATIENT
  Age: 10 Month
  Sex: Male

DRUGS (1)
  1. TEETHING TABLETS [Suspect]
     Dosage: 1 TAB X 2 DAYS;

REACTIONS (2)
  - BODY TEMPERATURE INCREASED [None]
  - CONVULSION [None]
